FAERS Safety Report 10067201 (Version 1)
Quarter: 2014Q2

REPORT INFORMATION
  Report Type: Spontaneous
  Country: US (occurrence: None)
  Receive Date: 20140408
  Receipt Date: 20140408
  Transmission Date: 20141212
  Serious: Yes (Other)
  Sender: FDA-Public Use
  Company Number: None

PATIENT
  Sex: Female

DRUGS (1)
  1. COL-RITE [Suspect]
     Indication: CONSTIPATION
     Route: 048
     Dates: start: 20140406

REACTIONS (4)
  - Oral discomfort [None]
  - Throat irritation [None]
  - Self-medication [None]
  - Product label issue [None]
